FAERS Safety Report 14540136 (Version 2)
Quarter: 2018Q1

REPORT INFORMATION
  Report Type: Report from Study
  Country: None (occurrence: TR)
  Receive Date: 20180216
  Receipt Date: 20180309
  Transmission Date: 20180509
  Serious: Yes (Hospitalization)
  Sender: FDA-Public Use
  Company Number: TR-ABBVIE-18K-161-2259864-00

PATIENT
  Age: 63 Year
  Sex: Male

DRUGS (4)
  1. MADOPAR HBS [Concomitant]
     Active Substance: BENSERAZIDE HYDROCHLORIDE\LEVODOPA
     Indication: PARKINSON^S DISEASE
     Route: 048
     Dates: start: 20171228
  2. DUODOPA [Suspect]
     Active Substance: CARBIDOPA\LEVODOPA
     Dosage: MD(ML):5.80?CD(ML):2.30?07-14.00 O^CLOCK:2.3ML?4-23.00 O^CLOCK:2.7 ML)?EXTRA DOSE(ML):1.50
     Route: 050
     Dates: start: 20180215
  3. DUODOPA [Suspect]
     Active Substance: CARBIDOPA\LEVODOPA
     Indication: PARKINSON^S DISEASE
     Dosage: MD(ML):5.80?CD(ML):2.30?ED(ML):1.50
     Route: 050
     Dates: start: 20171124, end: 20180127
  4. PEXA XR [Concomitant]
     Indication: PARKINSON^S DISEASE
     Dosage: 1X3/2
     Route: 048

REACTIONS (1)
  - Gastritis [Not Recovered/Not Resolved]

NARRATIVE: CASE EVENT DATE: 20180215
